FAERS Safety Report 22136312 (Version 1)
Quarter: 2023Q1

REPORT INFORMATION
  Report Type: Spontaneous
  Country: US (occurrence: US)
  Receive Date: 20230324
  Receipt Date: 20230324
  Transmission Date: 20230417
  Serious: Yes (Death)
  Sender: FDA-Public Use
  Company Number: US-BIOMARINAP-US-2023-149226

PATIENT

DRUGS (2)
  1. VIMIZIM [Suspect]
     Active Substance: ELOSULFASE ALFA
     Indication: Mucopolysaccharidosis IV
     Dosage: 25 MILLIGRAM, QW
     Route: 042
     Dates: start: 20191205
  2. VIMIZIM [Suspect]
     Active Substance: ELOSULFASE ALFA
     Dosage: 26 MILLIGRAM, QW
     Route: 042
     Dates: start: 20191127

REACTIONS (3)
  - Cardiac disorder [Fatal]
  - Unresponsive to stimuli [Unknown]
  - Pulse absent [Unknown]

NARRATIVE: CASE EVENT DATE: 20230318
